FAERS Safety Report 5000615-6 (Version None)
Quarter: 2006Q2

REPORT INFORMATION
  Report Type: 
  Country: None (occurrence: None)
  Receive Date: 20060512
  Receipt Date: 20060427
  Transmission Date: 20061013
  Serious: Yes (Disabling)
  Sender: FDA-Public Use
  Company Number: GBWYE589228APR06

PATIENT
  Age: 48 Year
  Sex: Female
  Weight: 95 kg

DRUGS (9)
  1. ENBREL [Suspect]
     Indication: RHEUMATOID ARTHRITIS
     Route: 058
     Dates: start: 20050609
  2. PREDNISOLONE [Concomitant]
     Dates: start: 20040902
  3. FOLIC ACID [Concomitant]
     Indication: VITAMIN SUPPLEMENTATION
     Dates: start: 20040902, end: 20060329
  4. METOCLOPRAMIDE [Concomitant]
     Indication: NAUSEA
     Dosage: 10MG AS NEEDED
     Dates: start: 20050224
  5. MORPHINE SULFATE [Concomitant]
     Dosage: 5-10MG AS NEEDED
     Dates: start: 20041108
  6. LANSOPRAZOLE [Concomitant]
     Dosage: 30MG FREQUENCY UNKNOWN
  7. AMITRIPTYLINE HCL [Concomitant]
     Dates: start: 20041108
  8. DIHYDROCODEINE [Concomitant]
     Dosage: 30-60MG AS NEEDED
     Dates: start: 20041108
  9. METHOTREXATE [Concomitant]
     Dates: start: 20040902, end: 20060329

REACTIONS (1)
  - PUSTULAR PSORIASIS [None]
